FAERS Safety Report 4815999-9 (Version None)
Quarter: 2005Q4

REPORT INFORMATION
  Report Type: 
  Country: None (occurrence: None)
  Receive Date: 20051026
  Receipt Date: 20051017
  Transmission Date: 20060501
  Serious: Yes (Other)
  Sender: FDA-Public Use
  Company Number: 234940K05USA

PATIENT
  Age: 60 Year
  Sex: Female

DRUGS (1)
  1. REBIF [Suspect]
     Indication: MULTIPLE SCLEROSIS
     Dosage: 44 MCG. 3 IN 1 WEEKS, SUBCUTANEOUS
     Route: 058
     Dates: start: 20040610

REACTIONS (3)
  - BLADDER NEOPLASM [None]
  - URINARY RETENTION [None]
  - URINARY TRACT INFECTION [None]
